FAERS Safety Report 11925066 (Version 1)
Quarter: 2016Q1

REPORT INFORMATION
  Report Type: Report from Study
  Country: BR (occurrence: BR)
  Receive Date: 20160118
  Receipt Date: 20160118
  Transmission Date: 20160526
  Serious: Yes (Other)
  Sender: FDA-Public Use
  Company Number: PHHY2016BR003863

PATIENT
  Sex: Female

DRUGS (1)
  1. DIOVAN AMLO FIX [Suspect]
     Active Substance: AMLODIPINE\VALSARTAN
     Indication: PRODUCT USED FOR UNKNOWN INDICATION
     Dosage: 160 MG, UNK
     Route: 065

REACTIONS (1)
  - Hypoacusis [Unknown]
